FAERS Safety Report 7236038-9 (Version None)
Quarter: 2011Q1

REPORT INFORMATION
  Report Type: 
  Country: None (occurrence: None)
  Receive Date: 20110120
  Receipt Date: 20110111
  Transmission Date: 20110831
  Serious: Yes (Other)
  Sender: FDA-Public Use
  Company Number: JP-BRISTOL-MYERS SQUIBB COMPANY-15491343

PATIENT
  Age: 79 Year
  Sex: Male

DRUGS (3)
  1. METGLUCO [Suspect]
     Indication: DIABETES MELLITUS
     Route: 048
     Dates: end: 20100101
  2. AMARYL [Concomitant]
  3. ACTOS [Concomitant]

REACTIONS (2)
  - HYPERKALAEMIA [None]
  - HYPOGLYCAEMIA [None]
